FAERS Safety Report 6939457-0 (Version None)
Quarter: 2010Q3

REPORT INFORMATION
  Report Type: 
  Country: None (occurrence: None)
  Receive Date: 20100819
  Receipt Date: 20100813
  Transmission Date: 20110219
  Serious: Yes (Hospitalization)
  Sender: FDA-Public Use
  Company Number: 016172

PATIENT
  Sex: Male

DRUGS (12)
  1. NEUPRO [Suspect]
     Indication: PARKINSON'S DISEASE
     Dosage: (2 MG QD TRANSDERMAL) ; (4 MG QD TRANSDERMAL)
     Route: 062
     Dates: start: 20100503, end: 20100510
  2. NEUPRO [Suspect]
     Indication: PARKINSON'S DISEASE
     Dosage: (2 MG QD TRANSDERMAL) ; (4 MG QD TRANSDERMAL)
     Route: 062
     Dates: start: 20100511, end: 20100622
  3. MIRAPEX [Suspect]
     Indication: PARKINSON'S DISEASE
     Dosage: (0.7 MG BID ORAL) ; (0.7 MG, 4.5 INTAKES PER DAY)
     Route: 048
     Dates: start: 20070503, end: 20100502
  4. MIRAPEX [Suspect]
     Indication: PARKINSON'S DISEASE
     Dosage: (0.7 MG BID ORAL) ; (0.7 MG, 4.5 INTAKES PER DAY)
     Route: 048
     Dates: start: 20100511, end: 20100702
  5. STAVELO [Concomitant]
  6. SINEMET [Concomitant]
  7. TAMSULOSIN HCL [Concomitant]
  8. ASCRIPTIN /00058201/ [Concomitant]
  9. PRADIF [Concomitant]
  10. PLENDIL [Concomitant]
  11. LOSAPREX [Concomitant]
  12. POTASSIUM CHLORIDE [Concomitant]

REACTIONS (4)
  - DIZZINESS [None]
  - FALL [None]
  - INJURY [None]
  - VISION BLURRED [None]
